FAERS Safety Report 5708793-8 (Version None)
Quarter: 2008Q2

REPORT INFORMATION
  Report Type: 
  Country: None (occurrence: None)
  Receive Date: 20080417
  Receipt Date: 20080409
  Transmission Date: 20081010
  Serious: Yes (Hospitalization)
  Sender: FDA-Public Use
  Company Number: FR-MERCK-0804FRA00053

PATIENT
  Age: 83 Year
  Sex: Female

DRUGS (8)
  1. COZAAR [Suspect]
     Indication: HYPERTENSION
     Route: 048
  2. SPIRONOLACTONE [Suspect]
     Route: 048
  3. ESOMEPRAZOLE MAGNESIUM [Suspect]
     Route: 048
  4. ZOCOR [Suspect]
     Indication: HYPERCHOLESTEROLAEMIA
     Route: 048
  5. FUROSEMIDE [Suspect]
     Indication: HYPERTENSION
     Route: 048
  6. LEVOTHYROXINE SODIUM [Suspect]
     Indication: HYPOTHYROIDISM
     Route: 048
  7. AMIODARONE HYDROCHLORIDE [Suspect]
     Indication: ATRIAL FIBRILLATION
     Route: 048
  8. MEPROBAMATE [Suspect]
     Indication: INSOMNIA
     Route: 048

REACTIONS (4)
  - OEDEMA PERIPHERAL [None]
  - PRURITUS [None]
  - RASH MACULO-PAPULAR [None]
  - TOXIC SKIN ERUPTION [None]
